FAERS Safety Report 5119848-3 (Version None)
Quarter: 2006Q4

REPORT INFORMATION
  Report Type: 
  Country: None (occurrence: None)
  Receive Date: 20061003
  Receipt Date: 20060921
  Transmission Date: 20070319
  Serious: Yes (Hospitalization)
  Sender: FDA-Public Use
  Company Number: AU-GILEAD-2006-0010265

PATIENT
  Sex: Male

DRUGS (25)
  1. TENOFOVIR DISOPROXIL FUMARATE [Suspect]
     Indication: HIV INFECTION
     Route: 048
     Dates: start: 20011212
  2. DARUNAVIR [Suspect]
     Indication: HIV INFECTION
     Route: 048
     Dates: start: 20040212
  3. LAMIVUDINE [Suspect]
     Indication: HIV INFECTION
     Route: 048
     Dates: start: 20040212
  4. ABACAVIR [Suspect]
     Indication: HIV INFECTION
     Route: 048
     Dates: start: 20040407
  5. RITONAVIR [Concomitant]
     Indication: HIV INFECTION
     Route: 048
     Dates: start: 20040212
  6. PENTAMIDINE ISETHIONATE [Concomitant]
     Indication: ANTIBIOTIC PROPHYLAXIS
     Route: 048
     Dates: start: 20050210
  7. MULTIVITAMIN [Concomitant]
     Indication: ROUTINE HEALTH MAINTENANCE
     Route: 048
     Dates: start: 20060301
  8. VITAMIN B COMPLEX CAP [Concomitant]
     Indication: ROUTINE HEALTH MAINTENANCE
     Route: 048
     Dates: start: 20060301
  9. CABERGOLINE [Concomitant]
     Indication: HYPERPROLACTINAEMIA
     Route: 048
     Dates: start: 20050429
  10. CABERGOLINE [Concomitant]
     Indication: HYPOPITUITARISM
  11. GLUCOSAMINE WITH CHONDROITIN SULFATES [Concomitant]
     Indication: ARTHRALGIA
     Route: 048
     Dates: start: 20050915
  12. BLOPRESS [Concomitant]
     Indication: HYPERTENSION
     Route: 048
     Dates: start: 20051115
  13. RANITIDINE [Concomitant]
     Indication: REFLUX OESOPHAGITIS
     Route: 048
     Dates: start: 20051212
  14. ASPIRIN [Concomitant]
     Indication: ATRIAL FIBRILLATION
     Route: 048
     Dates: start: 20051213
  15. HYDROCORTISONE [Concomitant]
     Indication: SKIN PAPILLOMA
     Route: 061
     Dates: start: 20051230
  16. VALPROATE SODIUM [Concomitant]
     Indication: NEUROPATHY PERIPHERAL
     Route: 048
     Dates: start: 20060325
  17. PRAZOSIN HCL [Concomitant]
     Indication: HYPERTENSION
     Route: 048
     Dates: start: 20060622
  18. ROXITHROMYCIN [Concomitant]
     Indication: ASTHMA
     Route: 048
     Dates: start: 20060802
  19. CEPHALEXIN MONOHYDRATE [Concomitant]
     Indication: ASTHMA
     Route: 048
     Dates: start: 20060802
  20. ALPRAZOLAM [Concomitant]
     Indication: ANXIETY
     Route: 048
     Dates: start: 20040812
  21. VALACYCLOVIR HCL [Concomitant]
     Indication: ANTIVIRAL PROPHYLAXIS
     Route: 048
     Dates: start: 20041119
  22. DOMPERIDONE [Concomitant]
     Indication: REFLUX OESOPHAGITIS
     Route: 048
     Dates: start: 20050318
  23. ALOE VERA JUICE [Concomitant]
     Indication: ROUTINE HEALTH MAINTENANCE
     Route: 048
     Dates: start: 20050318
  24. LYRICA [Concomitant]
     Indication: NEUROPATHY PERIPHERAL
     Route: 048
     Dates: start: 20060401
  25. XANAX [Concomitant]
     Indication: ANXIETY
     Route: 048
     Dates: start: 20040812

REACTIONS (1)
  - GYNAECOMASTIA [None]
